FAERS Safety Report 6337030-9 (Version None)
Quarter: 2009Q3

REPORT INFORMATION
  Report Type: 
  Country: None (occurrence: None)
  Receive Date: 20090831
  Receipt Date: 20090814
  Transmission Date: 20100115
  Serious: Yes (Hospitalization, Other)
  Sender: FDA-Public Use
  Company Number: 2009PV038378

PATIENT
  Age: 38 Year
  Sex: Female
  Weight: 165.5629 kg

DRUGS (10)
  1. SYMLIN [Suspect]
     Indication: INSULIN RESISTANCE
     Dosage: SEE IMAGE
     Route: 058
     Dates: start: 20090604, end: 20090101
  2. SYMLIN [Suspect]
     Indication: INSULIN RESISTANCE
     Dosage: SEE IMAGE
     Route: 058
     Dates: start: 20090401, end: 20090401
  3. SYMLIN [Suspect]
     Indication: INSULIN RESISTANCE
     Dosage: SEE IMAGE
     Route: 058
     Dates: start: 20090401, end: 20090401
  4. SYMLIN [Suspect]
     Indication: INSULIN RESISTANCE
     Dosage: SEE IMAGE
     Route: 058
     Dates: start: 20090407, end: 20090401
  5. SYMLIN [Suspect]
     Indication: INSULIN RESISTANCE
     Dosage: SEE IMAGE
     Route: 058
     Dates: start: 20090401, end: 20090517
  6. SYMLIN [Suspect]
     Indication: INSULIN RESISTANCE
     Dosage: SEE IMAGE
     Route: 058
     Dates: start: 20090806
  7. SYMLIN [Suspect]
     Indication: INSULIN RESISTANCE
     Dosage: TID, SC
     Route: 058
     Dates: start: 20090101, end: 20090401
  8. SYMLIN [Suspect]
     Indication: INSULIN RESISTANCE
     Dosage: TID; SC
     Route: 058
     Dates: start: 20090101, end: 20090101
  9. CYMBALTA [Concomitant]
  10. LEVOTHYROXINE [Concomitant]

REACTIONS (18)
  - ASTHENIA [None]
  - BACTERIA URINE [None]
  - BACTERIA URINE IDENTIFIED [None]
  - CHOLELITHIASIS [None]
  - DEAFNESS UNILATERAL [None]
  - DIZZINESS [None]
  - FALL [None]
  - GAIT DISTURBANCE [None]
  - GRIP STRENGTH DECREASED [None]
  - HYPOAESTHESIA [None]
  - HYPOGLYCAEMIA [None]
  - HYPOGLYCAEMIA UNAWARENESS [None]
  - HYPOPHAGIA [None]
  - LETHARGY [None]
  - LOSS OF CONSCIOUSNESS [None]
  - NAUSEA [None]
  - PHOTOPHOBIA [None]
  - VISION BLURRED [None]
